FAERS Safety Report 12173350 (Version 1)
Quarter: 2016Q1

REPORT INFORMATION
  Report Type: Report from Study
  Country: HU (occurrence: HU)
  Receive Date: 20160311
  Receipt Date: 20160311
  Transmission Date: 20160526
  Serious: Yes (Hospitalization)
  Sender: FDA-Public Use
  Company Number: HU-ABBVIE-16P-076-1577469-00

PATIENT
  Age: 63 Year
  Sex: Male

DRUGS (4)
  1. XANAX [Concomitant]
     Active Substance: ALPRAZOLAM
     Indication: DEPRESSION
     Route: 048
  2. DUODOPA [Suspect]
     Active Substance: CARBIDOPA\LEVODOPA
     Indication: PARKINSON^S DISEASE
     Dosage: MORNING DOSE: 8.5ML; CONTINUOUS DOSE: 3.4ML/H; EVENING DOSE: 1.5ML
     Route: 050
     Dates: start: 20150227
  3. QUETIAPINE TEVA [Concomitant]
     Active Substance: QUETIAPINE
     Indication: DEPRESSION
     Dates: start: 20150626
  4. MADOPAR [Concomitant]
     Active Substance: BENSERAZIDE HYDROCHLORIDE\LEVODOPA
     Indication: PARKINSON^S DISEASE
     Dosage: AT 3 AM
     Route: 048
     Dates: start: 20160301

REACTIONS (2)
  - Asphyxia [Recovered/Resolved]
  - Joint swelling [Not Recovered/Not Resolved]

NARRATIVE: CASE EVENT DATE: 20160224
